FAERS Safety Report 4919703-5 (Version None)
Quarter: 2006Q1

REPORT INFORMATION
  Report Type: 
  Country: None (occurrence: None)
  Receive Date: 20060221
  Receipt Date: 20060209
  Transmission Date: 20060701
  Serious: Yes (Hospitalization)
  Sender: FDA-Public Use
  Company Number: 2006P1000111

PATIENT
  Age: 69 Year

DRUGS (2)
  1. RETEPLASE (RETEPLASE) [Suspect]
     Indication: ACUTE MYOCARDIAL INFARCTION
     Dosage: IV
     Route: 042
  2. ABCIXIMAB (ABCIXIMAB) [Suspect]
     Indication: ACUTE MYOCARDIAL INFARCTION
     Dosage: IV
     Route: 042

REACTIONS (5)
  - CARDIOGENIC SHOCK [None]
  - CORONARY ARTERY STENOSIS [None]
  - ESCHAR [None]
  - POST PROCEDURAL HAEMATOMA [None]
  - VASCULAR PSEUDOANEURYSM [None]
